FAERS Safety Report 5467909-1 (Version None)
Quarter: 2007Q3

REPORT INFORMATION
  Report Type: 
  Country: None (occurrence: None)
  Receive Date: 20070820
  Receipt Date: 20070625
  Transmission Date: 20080115
  Serious: No
  Sender: FDA-Public Use
  Company Number: WAES 0701USA03175

PATIENT
  Age: 80 Year
  Sex: Female
  Weight: 87.9978 kg

DRUGS (6)
  1. JANUVIA [Suspect]
     Indication: DIABETES MELLITUS
     Dosage: 100 MG/DAILY/PO
     Route: 048
     Dates: start: 20061128, end: 20070116
  2. AVAPRO [Concomitant]
  3. GLUCOPHAGE [Concomitant]
  4. K-DUR 10 [Concomitant]
  5. ZOCOR [Concomitant]
  6. GLIPIZIDE [Concomitant]

REACTIONS (2)
  - ACNE [None]
  - ALOPECIA [None]
